FAERS Safety Report 9249413 (Version 1)
Quarter: 2013Q2

REPORT INFORMATION
  Report Type: Spontaneous
  Country: US (occurrence: US)
  Receive Date: 20130423
  Receipt Date: 20130423
  Transmission Date: 20140414
  Serious: Yes (Death)
  Sender: FDA-Public Use
  Company Number: US-GLAXOSMITHKLINE-A1019363A

PATIENT
  Age: 79 Year
  Sex: Male

DRUGS (1)
  1. VOTRIENT [Suspect]
     Indication: RENAL CANCER
     Dosage: 800MG PER DAY

REACTIONS (2)
  - Death [Fatal]
  - Hospice care [Unknown]
